APPROVED DRUG PRODUCT: OLUMIANT
Active Ingredient: BARICITINIB
Strength: 1MG
Dosage Form/Route: TABLET;ORAL
Application: N207924 | Product #002 | TE Code: AB
Applicant: ELI LILLY AND CO
Approved: Oct 8, 2019 | RLD: Yes | RS: No | Type: RX

PATENTS:
Patent 9737469 | Expires: Nov 2, 2031
Patent 11045474 | Expires: Nov 30, 2032
Patent 9089574 | Expires: Nov 30, 2032
Patent 8420629 | Expires: Mar 10, 2029
Patent 11806555 | Expires: Nov 2, 2031
Patent 8158616 | Expires: May 31, 2032